FAERS Safety Report 25655894 (Version 1)
Quarter: 2025Q3

REPORT INFORMATION
  Report Type: Spontaneous
  Country: US (occurrence: US)
  Receive Date: 20250807
  Receipt Date: 20250807
  Transmission Date: 20251020
  Serious: No
  Sender: AMGEN
  Company Number: US-AMGEN-USASP2025153507

PATIENT
  Age: 47 Year
  Sex: Male

DRUGS (4)
  1. TEPEZZA [Suspect]
     Active Substance: TEPROTUMUMAB-TRBW
     Indication: Endocrine ophthalmopathy
     Route: 040
     Dates: end: 20250512
  2. AMITRIPTYLINE [Concomitant]
     Active Substance: AMITRIPTYLINE
     Route: 065
  3. GABAPENTIN [Concomitant]
     Active Substance: GABAPENTIN
  4. METFORMIN [Concomitant]
     Active Substance: METFORMIN HYDROCHLORIDE

REACTIONS (7)
  - Gingival pain [Unknown]
  - Erythema [Unknown]
  - Mouth haemorrhage [Unknown]
  - Gingival recession [Unknown]
  - Bone resorption test abnormal [Unknown]
  - Pruritus [Unknown]
  - Hyperglycaemia [Unknown]
